FAERS Safety Report 6765614-2 (Version None)
Quarter: 2010Q2

REPORT INFORMATION
  Report Type: 
  Country: None (occurrence: None)
  Receive Date: 20100611
  Receipt Date: 20100601
  Transmission Date: 20101027
  Serious: Yes (Hospitalization, Other)
  Sender: FDA-Public Use
  Company Number: GB-ELI_LILLY_AND_COMPANY-GB200807005098

PATIENT
  Sex: Female
  Weight: 112.2 kg

DRUGS (11)
  1. BYETTA [Suspect]
     Indication: TYPE 2 DIABETES MELLITUS
     Dosage: 10 UG, UNKNOWN
     Route: 058
     Dates: start: 20070827, end: 20080724
  2. METFORMIN [Concomitant]
     Dosage: 500 MG, 2/D
     Route: 065
  3. RAMIPRIL [Concomitant]
     Dosage: UNK, UNKNOWN
     Route: 065
  4. ASPIRIN [Concomitant]
     Dosage: UNK, UNKNOWN
     Route: 065
  5. SPIRONOLACTONE [Concomitant]
     Dosage: UNK, UNKNOWN
     Route: 065
  6. FUROSEMIDE [Concomitant]
     Dosage: UNK, UNKNOWN
     Route: 065
  7. OMEPRAZOLE [Concomitant]
     Dosage: UNK, UNKNOWN
     Route: 065
  8. AMITRIPTYLINE [Concomitant]
     Dosage: UNK, UNKNOWN
     Route: 065
  9. ATORVASTATIN [Concomitant]
     Dosage: UNK, UNKNOWN
     Route: 065
  10. WARFARIN [Concomitant]
     Dosage: UNK, UNKNOWN
     Route: 065
  11. LEVOTHYROXINE SODIUM [Concomitant]
     Dosage: UNK, UNKNOWN
     Route: 065

REACTIONS (3)
  - DEHYDRATION [None]
  - HYPOTENSION [None]
  - RENAL FAILURE ACUTE [None]
